FAERS Safety Report 21949494 (Version 5)
Quarter: 2023Q2

REPORT INFORMATION
  Report Type: Report from Study
  Country: CA (occurrence: CA)
  Receive Date: 20230203
  Receipt Date: 20230403
  Transmission Date: 20230722
  Serious: Yes (Hospitalization)
  Sender: FDA-Public Use
  Company Number: CA-ABBVIE-4288322

PATIENT
  Sex: Female

DRUGS (4)
  1. SKYRIZI [Suspect]
     Active Substance: RISANKIZUMAB-RZAA
     Indication: Crohn^s disease
     Route: 042
     Dates: start: 20230117, end: 20230314
  2. SKYRIZI [Suspect]
     Active Substance: RISANKIZUMAB-RZAA
     Route: 042
  3. SKYRIZI [Suspect]
     Active Substance: RISANKIZUMAB-RZAA
     Route: 042
  4. SKYRIZI [Suspect]
     Active Substance: RISANKIZUMAB-RZAA
     Route: 042

REACTIONS (11)
  - Abdominal pain [Not Recovered/Not Resolved]
  - Pollakiuria [Unknown]
  - Haematochezia [Unknown]
  - Micturition urgency [Unknown]
  - Sinus congestion [Unknown]
  - Urinary incontinence [Unknown]
  - Throat tightness [Unknown]
  - Insomnia [Unknown]
  - Palpitations [Unknown]
  - Middle insomnia [Unknown]
  - Lymphadenopathy [Unknown]
